FAERS Safety Report 18340864 (Version 4)
Quarter: 2021Q1

REPORT INFORMATION
  Report Type: Spontaneous
  Country: PT (occurrence: PT)
  Receive Date: 20201003
  Receipt Date: 20210206
  Transmission Date: 20210419
  Serious: Yes (Hospitalization, Other)
  Sender: FDA-Public Use
  Company Number: PT-AUROBINDO-AUR-APL-2020-050072

PATIENT
  Age: 65 Year
  Sex: Male

DRUGS (1)
  1. AMOXICILLIN+CLAVULANIC ACID [Suspect]
     Active Substance: AMOXICILLIN\CLAVULANIC ACID
     Indication: TONSILLITIS
     Dosage: UNK
     Route: 065

REACTIONS (8)
  - Pruritus [Recovered/Resolved]
  - Jaundice [Recovered/Resolved]
  - Drug-induced liver injury [Recovered/Resolved]
  - Decreased appetite [Recovered/Resolved]
  - Hepatitis cholestatic [Recovered/Resolved]
  - Abdominal discomfort [Recovered/Resolved]
  - Choluria [Recovered/Resolved]
  - Deficiency of bile secretion [Recovered/Resolved]
